FAERS Safety Report 4512804-5 (Version None)
Quarter: 2004Q4

REPORT INFORMATION
  Report Type: 
  Country: None (occurrence: None)
  Receive Date: 20041119
  Receipt Date: 20041119
  Transmission Date: 20050328
  Serious: Yes (Hospitalization)
  Sender: FDA-Public Use
  Company Number: None

PATIENT
  Age: 37 Year
  Sex: Female
  Weight: 43.9989 kg

DRUGS (3)
  1. CISPLATIN [Suspect]
     Indication: CARCINOMA
     Dosage: 100 MG/ M2 IV DAYS 1 + 29
     Route: 042
     Dates: start: 20040928
  2. CISPLATIN [Suspect]
     Indication: CARCINOMA
     Dosage: 100 MG/ M2 IV DAYS 1 + 29
     Route: 042
     Dates: start: 20041026
  3. RT [Concomitant]

REACTIONS (1)
  - FEBRILE NEUTROPENIA [None]
